FAERS Safety Report 18269436 (Version 4)
Quarter: 2021Q3

REPORT INFORMATION
  Report Type: Report from Study
  Country: None (occurrence: ES)
  Receive Date: 20200915
  Receipt Date: 20210713
  Transmission Date: 20211014
  Serious: Yes (Hospitalization)
  Sender: FDA-Public Use
  Company Number: ES-ABBVIE-20P-144-3557449-00

PATIENT
  Age: 45 Year
  Sex: Female
  Weight: 106 kg

DRUGS (20)
  1. SINTROM (ACENOCUMAROL) [Concomitant]
     Indication: ANTIPHOSPHOLIPID SYNDROME
     Route: 048
     Dates: start: 20190401
  2. IMUREL [Concomitant]
     Active Substance: AZATHIOPRINE SODIUM
     Route: 048
     Dates: start: 20190329
  3. PREGABALINA [Concomitant]
     Active Substance: PREGABALIN
     Indication: ANXIETY DISORDER
     Route: 048
     Dates: start: 20110216
  4. FLUOXETINA [Concomitant]
     Active Substance: FLUOXETINE HYDROCHLORIDE
     Indication: ANXIETY DISORDER
     Route: 048
     Dates: start: 20110216
  5. IMUREL [Concomitant]
     Active Substance: AZATHIOPRINE SODIUM
     Indication: SYSTEMIC LUPUS ERYTHEMATOSUS
     Route: 048
     Dates: start: 20190228, end: 20190329
  6. HIDROFEROL [Concomitant]
     Active Substance: CALCIFEDIOL
     Indication: VITAMIN D DEFICIENCY
     Route: 048
     Dates: start: 20190626
  7. PREDNISONA [Concomitant]
     Active Substance: PREDNISONE
     Indication: SYSTEMIC LUPUS ERYTHEMATOSUS
     Route: 048
     Dates: start: 20190513
  8. ADIAVAL [Concomitant]
     Indication: VITAMIN D DEFICIENCY
     Dosage: 1000MG/880UI
     Route: 048
     Dates: start: 20190626
  9. ALPRAZOLAM. [Concomitant]
     Active Substance: ALPRAZOLAM
     Indication: ANXIETY DISORDER
     Route: 048
     Dates: start: 20160915
  10. ELSUBRUTINIB. [Suspect]
     Active Substance: ELSUBRUTINIB
     Indication: SYSTEMIC LUPUS ERYTHEMATOSUS
     Route: 048
     Dates: start: 20200806, end: 20200823
  11. PALEXIA [Concomitant]
     Active Substance: TAPENTADOL HYDROCHLORIDE
     Indication: SYSTEMIC LUPUS ERYTHEMATOSUS
     Route: 048
     Dates: start: 20190116
  12. VENLAFAXINA [Concomitant]
     Active Substance: VENLAFAXINE HYDROCHLORIDE
     Indication: ANXIETY DISORDER
     Route: 048
     Dates: start: 20181214
  13. TRANXILIUM [Concomitant]
     Active Substance: CLORAZEPATE DIPOTASSIUM
     Indication: ANXIETY DISORDER
     Route: 048
     Dates: start: 20100216
  14. LORMETAZEPAM [Concomitant]
     Active Substance: LORMETAZEPAM
     Indication: ANXIETY DISORDER
     Route: 048
     Dates: start: 20190402
  15. PANTOPRAZOL [Concomitant]
     Active Substance: PANTOPRAZOLE SODIUM
     Indication: PROPHYLAXIS AGAINST GASTROINTESTINAL ULCER
     Route: 048
     Dates: start: 20130315
  16. BISOPROLOL [Concomitant]
     Active Substance: BISOPROLOL
     Indication: SINUS TACHYCARDIA
     Route: 048
     Dates: start: 20170911
  17. UPADACITINIB [Suspect]
     Active Substance: UPADACITINIB
     Indication: SYSTEMIC LUPUS ERYTHEMATOSUS
     Route: 048
     Dates: start: 20200806, end: 20200823
  18. DOLQUINE [Concomitant]
     Active Substance: HYDROXYCHLOROQUINE SULFATE
     Indication: SYSTEMIC LUPUS ERYTHEMATOSUS
     Route: 048
     Dates: start: 20170330, end: 20171018
  19. DOLQUINE [Concomitant]
     Active Substance: HYDROXYCHLOROQUINE SULFATE
     Route: 048
     Dates: start: 20171019
  20. QUETIAPINA [Concomitant]
     Active Substance: QUETIAPINE
     Indication: ANXIETY DISORDER
     Route: 048
     Dates: start: 20180719

REACTIONS (1)
  - Neutropenia [Not Recovered/Not Resolved]

NARRATIVE: CASE EVENT DATE: 20200820
